FAERS Safety Report 6466942-0 (Version None)
Quarter: 2009Q4

REPORT INFORMATION
  Report Type: 
  Country: None (occurrence: None)
  Receive Date: 20091202
  Receipt Date: 20091124
  Transmission Date: 20100525
  Serious: Yes (Hospitalization)
  Sender: FDA-Public Use
  Company Number: JP-JNJFOC-20091103315

PATIENT
  Sex: Male
  Weight: 59.5 kg

DRUGS (16)
  1. FENTANYL-100 [Suspect]
     Route: 062
     Dates: start: 20091006, end: 20091029
  2. FENTANYL-100 [Suspect]
     Route: 062
     Dates: start: 20091006, end: 20091029
  3. FENTANYL-100 [Suspect]
     Route: 062
     Dates: start: 20091006, end: 20091029
  4. FENTANYL-100 [Suspect]
     Indication: POST HERPETIC NEURALGIA
     Route: 062
     Dates: start: 20091006, end: 20091029
  5. BLOPRESS [Concomitant]
     Indication: HYPERTENSION
     Route: 048
  6. AMARYL [Concomitant]
     Indication: TYPE 2 DIABETES MELLITUS
     Route: 048
  7. TRYPTANOL [Concomitant]
     Indication: PAIN
     Route: 048
     Dates: start: 20090101
  8. PANTOSIN [Concomitant]
     Indication: CONSTIPATION
     Route: 048
     Dates: start: 20090101
  9. MAGMITT [Concomitant]
     Indication: CONSTIPATION
     Route: 048
     Dates: start: 20091006
  10. SENNOSIDE [Concomitant]
     Indication: CONSTIPATION
     Route: 048
     Dates: start: 20091009
  11. LECICARBON [Concomitant]
     Indication: CONSTIPATION
     Route: 054
  12. CONIEL [Concomitant]
     Indication: HYPERTENSION
     Route: 048
  13. URINORM [Concomitant]
     Indication: HYPERURICAEMIA
     Route: 048
  14. METHYCOBAL [Concomitant]
     Indication: NEUROPATHY PERIPHERAL
     Route: 048
  15. URSO 250 [Concomitant]
     Indication: HEPATITIS C
     Route: 048
  16. HALCION [Concomitant]
     Indication: INSOMNIA
     Route: 048

REACTIONS (1)
  - WITHDRAWAL SYNDROME [None]
